FAERS Safety Report 17487872 (Version 1)
Quarter: 2020Q1

REPORT INFORMATION
  Report Type: Spontaneous
  Country: US (occurrence: US)
  Receive Date: 20200302
  Receipt Date: 20200302
  Transmission Date: 20200409
  Serious: Yes (Other)
  Sender: FDA-Public Use
  Company Number: None

PATIENT
  Age: 59 Year
  Sex: Female
  Weight: 62.55 kg

DRUGS (9)
  1. PUMO GLUCOSE SENSOR [Concomitant]
  2. VITAMIN B COMPLEX [Concomitant]
     Active Substance: CYANOCOBALAMIN\DEXPANTHENOL\NIACINAMIDE\PYRIDOXINE HYDROCHLORIDE\RIBOFLAVIN 5^-PHOSPHATE SODIUM\THIAMINE HYDROCHLORIDE\VITAMIN B COMPLEX
  3. IBUPROFEN. [Concomitant]
     Active Substance: IBUPROFEN
  4. NOVA LOG INSULIN [Concomitant]
  5. MULTI VITAMIN [Concomitant]
     Active Substance: VITAMINS
  6. LEVOFLOXACIN. [Suspect]
     Active Substance: LEVOFLOXACIN
     Indication: BRONCHITIS
     Dosage: ?          QUANTITY:1 TABLET(S);?
     Route: 048
     Dates: start: 20191231, end: 20200107
  7. PROBIOTIC [Concomitant]
     Active Substance: PROBIOTICS NOS
  8. VITAMIN C [Concomitant]
     Active Substance: ASCORBIC ACID
  9. FISH OIL [Concomitant]
     Active Substance: FISH OIL

REACTIONS (6)
  - Contusion [None]
  - Swelling [None]
  - Tendon pain [None]
  - Tendon rupture [None]
  - Arthralgia [None]
  - Feeling hot [None]

NARRATIVE: CASE EVENT DATE: 20200130
